FAERS Safety Report 9049482 (Version 5)
Quarter: 2013Q4

REPORT INFORMATION
  Report Type: Report from Study
  Country: US (occurrence: US)
  Receive Date: 20130205
  Receipt Date: 20131106
  Transmission Date: 20140711
  Serious: Yes (Hospitalization)
  Sender: FDA-Public Use
  Company Number: US-GLAXOSMITHKLINE-Z0003399C

PATIENT
  Age: 61 Year
  Sex: Male
  Weight: 74.5 kg

DRUGS (2)
  1. DARAPLADIB [Suspect]
     Indication: CORONARY ARTERY DISEASE
     Dosage: 160MG PER DAY
     Route: 048
     Dates: start: 20090810, end: 20130312
  2. LOVAZA [Suspect]
     Indication: SUPPLEMENTATION THERAPY
     Dosage: 1000MG THREE TIMES PER DAY
     Route: 048
     Dates: start: 20120805, end: 20120807

REACTIONS (3)
  - Infectious colitis [Recovered/Resolved]
  - Hyponatraemia [Recovered/Resolved]
  - Local swelling [Recovered/Resolved]
